FAERS Safety Report 4805090-X (Version None)
Quarter: 2005Q4

REPORT INFORMATION
  Report Type: 
  Country: None (occurrence: None)
  Receive Date: 20051017
  Receipt Date: 20051003
  Transmission Date: 20060501
  Serious: Yes (Hospitalization)
  Sender: FDA-Public Use
  Company Number: 2005BI013134

PATIENT
  Age: 56 Year
  Sex: Female

DRUGS (2)
  1. AVONEX LYOPHILIZED [Suspect]
     Indication: MULTIPLE SCLEROSIS
     Dosage: 30 UG;QW; IM
     Route: 030
     Dates: start: 20020923
  2. AVONEX LIQUID [Suspect]
     Indication: MULTIPLE SCLEROSIS
     Dosage: 30 UG;QW; IM
     Route: 030

REACTIONS (3)
  - HERNIA [None]
  - OVERWEIGHT [None]
  - THROMBOSIS [None]
